FAERS Safety Report 9180380 (Version 2)
Quarter: 2013Q2

REPORT INFORMATION
  Report Type: Spontaneous
  Country: US (occurrence: US)
  Receive Date: 20130322
  Receipt Date: 20130411
  Transmission Date: 20140414
  Serious: Yes (Hospitalization)
  Sender: FDA-Public Use
  Company Number: US-BIOGENIDEC-2013BI025414

PATIENT
  Age: 53 Year
  Sex: Female

DRUGS (1)
  1. AVONEX [Suspect]
     Indication: MULTIPLE SCLEROSIS
     Route: 030
     Dates: start: 20071227

REACTIONS (5)
  - Multiple sclerosis relapse [Recovered/Resolved]
  - Muscle strain [Recovered/Resolved]
  - Central nervous system lesion [Unknown]
  - Arthritis [Not Recovered/Not Resolved]
  - Influenza like illness [Recovered/Resolved]
